FAERS Safety Report 4431177-X (Version None)
Quarter: 2004Q3

REPORT INFORMATION
  Report Type: 
  Country: None (occurrence: None)
  Receive Date: 20040823
  Receipt Date: 20040823
  Transmission Date: 20050211
  Serious: Yes (Life-Threatening, Disabling)
  Sender: FDA-Public Use
  Company Number: None

PATIENT
  Sex: Female
  Weight: 46.2669 kg

DRUGS (2)
  1. EFFEXOR XR [Suspect]
     Indication: MENOPAUSE
     Dosage: 1  1  ORAL
     Route: 048
     Dates: start: 20040115, end: 20040115
  2. VALIUM [Concomitant]

REACTIONS (11)
  - AGGRESSION [None]
  - AGITATION [None]
  - ANGER [None]
  - CONFUSIONAL STATE [None]
  - DRUG TOLERANCE [None]
  - FEELING ABNORMAL [None]
  - IMPAIRED WORK ABILITY [None]
  - INSOMNIA [None]
  - MARKEDLY REDUCED DIETARY INTAKE [None]
  - PANIC REACTION [None]
  - SUICIDAL IDEATION [None]
